FAERS Safety Report 4759889-9 (Version None)
Quarter: 2005Q3

REPORT INFORMATION
  Report Type: 
  Country: None (occurrence: None)
  Receive Date: 20050902
  Receipt Date: 20050823
  Transmission Date: 20060218
  Serious: Yes (Death)
  Sender: FDA-Public Use
  Company Number: JP-BOEHRINGER INGELHEIM PHARMACEUTICALS, INC.-2005-DE-03375GD

PATIENT
  Age: 66 Year
  Sex: Male

DRUGS (1)
  1. MEXILETINE HCL [Suspect]
     Indication: VENTRICULAR TACHYCARDIA
     Dates: start: 20011215

REACTIONS (12)
  - CARDIAC FAILURE [None]
  - CYTOMEGALOVIRUS INFECTION [None]
  - DRUG HYPERSENSITIVITY [None]
  - GENERAL PHYSICAL HEALTH DETERIORATION [None]
  - HUMAN HERPESVIRUS 6 INFECTION [None]
  - HYPOTENSION [None]
  - LEUKOCYTOSIS [None]
  - LIVER DISORDER [None]
  - LYMPHOCYTE MORPHOLOGY ABNORMAL [None]
  - MYOCARDITIS [None]
  - PYREXIA [None]
  - RASH PRURITIC [None]
